FAERS Safety Report 8717115 (Version 3)
Quarter: 2012Q4

REPORT INFORMATION
  Report Type: 
  Country: US (occurrence: US)
  Receive Date: 20120810
  Receipt Date: 20120914
  Transmission Date: 20130627
  Serious: Yes (Hospitalization)
  Sender: FDA-Public Use
  Company Number: US-US-EMD SERONO, INC.-7150806

PATIENT
  Age: 33 Year
  Sex: Female

DRUGS (5)
  1. REBIF [Suspect]
     Indication: MULTIPLE SCLEROSIS
     Route: 058
     Dates: start: 20120713
  2. REBIF [Suspect]
     Route: 058
     Dates: start: 20120806
  3. PERCOCET [Concomitant]
     Indication: BACK PAIN
  4. PERCOCET [Concomitant]
     Indication: PREMEDICATION
  5. PERCOCET [Concomitant]
     Indication: PAIN IN EXTREMITY

REACTIONS (2)
  - Multiple sclerosis relapse [Not Recovered/Not Resolved]
  - Lethargy [Unknown]
